FAERS Safety Report 17362515 (Version 1)
Quarter: 2020Q1

REPORT INFORMATION
  Report Type: Spontaneous
  Country: US (occurrence: US)
  Receive Date: 20200203
  Receipt Date: 20200203
  Transmission Date: 20200409
  Serious: Yes (Hospitalization)
  Sender: FDA-Public Use
  Company Number: US-FRESENIUS MEDICAL CARE RENAL THERAPIES GROUP-FMC-2001-000124

PATIENT
  Sex: Male
  Weight: 76 kg

DRUGS (12)
  1. DELFLEX WITH DEXTROSE 1.5% LOW MAGNESIUM LOW CALCIUM [Suspect]
     Active Substance: CALCIUM CHLORIDE\DEXTROSE\MAGNESIUM CHLORIDE\SODIUM CHLORIDE\SODIUM LACTATE
     Indication: END STAGE RENAL DISEASE
     Dosage: FILL VOLUME = 1500 ML, 6 EXCHANGES, NO LAST FILL, NO DAYTIME EXCHANGE, DWELL TIME = 1:36 MIN.
     Route: 033
     Dates: start: 20180726
  2. CALCITRIOL. [Concomitant]
     Active Substance: CALCITRIOL
  3. FOLIC ACID. [Concomitant]
     Active Substance: FOLIC ACID
  4. CLONIDINE. [Concomitant]
     Active Substance: CLONIDINE
  5. VITAMIN D2 [Concomitant]
     Active Substance: ERGOCALCIFEROL
  6. DELFLEX WITH DEXTROSE 4.25% LOW MAGNESIUM LOW CALCIUM [Suspect]
     Active Substance: CALCIUM CHLORIDE\DEXTROSE\MAGNESIUM CHLORIDE\SODIUM CHLORIDE\SODIUM LACTATE
     Indication: END STAGE RENAL DISEASE
     Dosage: FILL VOLUME = 1500 ML, 6 EXCHANGES, NO LAST FILL, NO DAYTIME EXCHANGE, DWELL TIME = 1:36 MIN.
     Route: 033
     Dates: start: 20180726
  7. LYRICA [Concomitant]
     Active Substance: PREGABALIN
  8. TUMS [Concomitant]
     Active Substance: CALCIUM CARBONATE
  9. AMLODIPINE [Concomitant]
     Active Substance: AMLODIPINE BESYLATE
  10. CALCIUM ACETATE. [Concomitant]
     Active Substance: CALCIUM ACETATE
  11. DELFLEX WITH DEXTROSE 2.5% LOW MAGNESIUM LOW CALCIUM [Suspect]
     Active Substance: CALCIUM CHLORIDE\DEXTROSE\MAGNESIUM CHLORIDE\SODIUM CHLORIDE\SODIUM LACTATE
     Indication: END STAGE RENAL DISEASE
     Dosage: FILL VOLUME = 1500 ML, 6 EXCHANGES, NO LAST FILL, NO DAYTIME EXCHANGE, DWELL TIME = 1:36 MIN.
     Route: 033
     Dates: start: 20180726
  12. MELATONIN [Concomitant]
     Active Substance: MELATONIN

REACTIONS (1)
  - Gastrointestinal haemorrhage [Recovered/Resolved]
